FAERS Safety Report 4665530-6 (Version None)
Quarter: 2005Q2

REPORT INFORMATION
  Report Type: 
  Country: None (occurrence: None)
  Receive Date: 20050517
  Receipt Date: 20050509
  Transmission Date: 20051028
  Serious: Yes (Other)
  Sender: FDA-Public Use
  Company Number: 2005072308

PATIENT
  Age: 64 Year
  Sex: Male

DRUGS (3)
  1. LIPITOR [Suspect]
     Indication: BLOOD CHOLESTEROL INCREASED
     Dosage: 80 MG (80 MG, 1 IN 1 D), ORAL
     Route: 048
     Dates: end: 20050401
  2. LIPITOR [Suspect]
     Indication: PROPHYLAXIS
     Dosage: 80 MG (80 MG, 1 IN 1 D), ORAL
     Route: 048
     Dates: end: 20050401
  3. EZETIMIBE (EZETIMIBE) [Concomitant]

REACTIONS (5)
  - BLOOD CREATINE PHOSPHOKINASE INCREASED [None]
  - DIFFICULTY IN WALKING [None]
  - MUSCLE DISORDER [None]
  - MYOSITIS [None]
  - PAIN [None]
